FAERS Safety Report 4273353-5 (Version None)
Quarter: 2004Q1

REPORT INFORMATION
  Report Type: 
  Country: None (occurrence: None)
  Receive Date: 20040115
  Receipt Date: 20040115
  Transmission Date: 20041129
  Serious: Yes (Other)
  Sender: FDA-Public Use
  Company Number: None

PATIENT
  Sex: Female
  Weight: 79.3795 kg

DRUGS (2)
  1. ATIVAN [Suspect]
     Indication: CONVULSION
     Dosage: X 1
  2. PHENYTOIN [Suspect]
     Dosage: X1

REACTIONS (1)
  - DELIRIUM [None]
